FAERS Safety Report 5875448-9 (Version None)
Quarter: 2008Q3

REPORT INFORMATION
  Report Type: 
  Country: None (occurrence: None)
  Receive Date: 20080904
  Receipt Date: 20080822
  Transmission Date: 20090109
  Serious: Yes (Life-Threatening, Hospitalization, Other)
  Sender: FDA-Public Use
  Company Number: 100#08#2008-04322

PATIENT
  Age: 19 Year
  Sex: Male

DRUGS (6)
  1. DILTIAZEM [Suspect]
     Indication: DRUG USE FOR UNKNOWN INDICATION
     Dosage: 3.6 G ORAL
     Route: 048
  2. ATENOLOL [Suspect]
     Indication: DRUG USE FOR UNKNOWN INDICATION
     Dosage: 0.5 G ORAL
     Route: 048
  3. VENLAFAXINE HCL [Suspect]
     Indication: DRUG USE FOR UNKNOWN INDICATION
     Dosage: 4.2 G ORAL
     Route: 048
  4. SERTRALINE [Suspect]
     Indication: DRUG USE FOR UNKNOWN INDICATION
     Dosage: 0.6 G ORAL
     Route: 048
  5. IRBESARTAN-HYDROCHLOROTHIAZIDE (IRBESARTAN, HYDROCHLOROTHIAZIDE) [Suspect]
     Indication: DRUG USE FOR UNKNOWN INDICATION
     Dosage: 1.5-0.25 G ORAL
     Route: 048
  6. CLOZAPINE [Suspect]
     Indication: DRUG USE FOR UNKNOWN INDICATION
     Dosage: 3 G ORAL

REACTIONS (14)
  - BODY TEMPERATURE DECREASED [None]
  - BRADYCARDIA [None]
  - DRUG TOXICITY [None]
  - DYSPNOEA [None]
  - EJECTION FRACTION DECREASED [None]
  - GENERAL PHYSICAL HEALTH DETERIORATION [None]
  - HAEMODIALYSIS [None]
  - HYPOTENSION [None]
  - MULTIPLE DRUG OVERDOSE INTENTIONAL [None]
  - NODAL RHYTHM [None]
  - SEDATION [None]
  - SINUS BRADYCARDIA [None]
  - THROMBOCYTOPENIA [None]
  - VASODILATATION [None]
